FAERS Safety Report 16229331 (Version 1)
Quarter: 2019Q2

REPORT INFORMATION
  Report Type: Spontaneous
  Country: DE (occurrence: DE)
  Receive Date: 20190423
  Receipt Date: 20190423
  Transmission Date: 20190711
  Serious: Yes (Other)
  Sender: FDA-Public Use
  Company Number: DE-ALLERGAN-1917203US

PATIENT
  Sex: Male
  Weight: 3.29 kg

DRUGS (2)
  1. CITALOPRAM HYDROBROMIDE - BP [Suspect]
     Active Substance: CITALOPRAM HYDROBROMIDE
     Indication: EXPOSURE DURING PREGNANCY
     Dosage: 20 MG, QD
     Route: 064
     Dates: start: 20171003, end: 20180702
  2. QUETIAPINE. [Suspect]
     Active Substance: QUETIAPINE
     Indication: EXPOSURE DURING PREGNANCY
     Dosage: 25 MG, QD
     Route: 064
     Dates: start: 20171003, end: 20180702

REACTIONS (10)
  - Atrial septal defect [Not Recovered/Not Resolved]
  - Newborn persistent pulmonary hypertension [Recovered/Resolved]
  - Cryptorchism [Unknown]
  - Brain oedema [Recovered/Resolved]
  - Tricuspid valve incompetence [Recovered/Resolved]
  - Respiratory disorder neonatal [Recovered/Resolved]
  - Neonatal seizure [Recovered/Resolved]
  - Patent ductus arteriosus [Recovered/Resolved]
  - Hypertonia neonatal [Not Recovered/Not Resolved]
  - Foetal exposure during pregnancy [Unknown]

NARRATIVE: CASE EVENT DATE: 20180702
